FAERS Safety Report 10248571 (Version 1)
Quarter: 2014Q2

REPORT INFORMATION
  Report Type: Spontaneous
  Country: US (occurrence: None)
  Receive Date: 20140617
  Receipt Date: 20140617
  Transmission Date: 20141212
  Serious: Yes (Death)
  Sender: FDA-Public Use
  Company Number: None

PATIENT
  Age: 65 Year
  Sex: Male
  Weight: 86.2 kg

DRUGS (9)
  1. OFATUMAMAB [Suspect]
     Indication: CHRONIC LYMPHOCYTIC LEUKAEMIA
     Route: 042
     Dates: start: 20120403, end: 20130226
  2. ALEMTUZUMAB [Suspect]
     Indication: CHRONIC LYMPHOCYTIC LEUKAEMIA
     Dosage: 30MC SC TIW
  3. ACYCLOVIR [Concomitant]
  4. ALLOPURINOL [Concomitant]
  5. MAGNESIUM OXIDE [Concomitant]
  6. METFORMIN [Concomitant]
  7. METROPROLOL SUCCINATE EXTENDED RELEASE [Concomitant]
  8. PERIDEX MOUTHWASH [Concomitant]
  9. PREDNISONE [Concomitant]

REACTIONS (1)
  - Disease progression [None]
